FAERS Safety Report 9681045 (Version 2)
Quarter: 2013Q4

REPORT INFORMATION
  Report Type: Report from Study
  Country: US (occurrence: US)
  Receive Date: 20131111
  Receipt Date: 20131111
  Transmission Date: 20140711
  Serious: Yes (Hospitalization)
  Sender: FDA-Public Use
  Company Number: PHHO2013US008382

PATIENT
  Age: 54 Year
  Sex: Male

DRUGS (2)
  1. SOM230 [Suspect]
     Indication: HEPATOCELLULAR CARCINOMA
     Dosage: UNK
     Route: 048
     Dates: end: 20130219
  2. AFINITOR [Suspect]
     Indication: HEPATOCELLULAR CARCINOMA
     Route: 048

REACTIONS (5)
  - Anaemia [Unknown]
  - Rectal haemorrhage [Unknown]
  - Hepatic failure [Unknown]
  - Encephalopathy [Unknown]
  - Hypotension [Unknown]
